FAERS Safety Report 23422713 (Version 3)
Quarter: 2024Q1

REPORT INFORMATION
  Report Type: Other
  Country: KR (occurrence: None)
  Receive Date: 20240119
  Receipt Date: 20240126
  Transmission Date: 20240410
  Serious: Yes (Hospitalization)
  Sender: FDA-Public Use
  Company Number: KR-ROCHE-3480390

PATIENT
  Age: 51 Year
  Sex: Male
  Weight: 90.7 kg

DRUGS (3)
  1. ADO-TRASTUZUMAB EMTANSINE [Suspect]
     Active Substance: ADO-TRASTUZUMAB EMTANSINE
     Indication: Rectal cancer
     Route: 042
     Dates: start: 20231129
  2. ADO-TRASTUZUMAB EMTANSINE [Suspect]
     Active Substance: ADO-TRASTUZUMAB EMTANSINE
     Route: 042
     Dates: start: 20231220
  3. ADO-TRASTUZUMAB EMTANSINE [Suspect]
     Active Substance: ADO-TRASTUZUMAB EMTANSINE
     Route: 042
     Dates: start: 20240118

REACTIONS (8)
  - Pneumonia [Recovered/Resolved]
  - Haematuria [Recovering/Resolving]
  - Platelet count decreased [Recovering/Resolving]
  - Liver function test increased [Recovering/Resolving]
  - Epistaxis [Unknown]
  - Melaena [Unknown]
  - Anaemia [Unknown]
  - Pyrexia [Unknown]

NARRATIVE: CASE EVENT DATE: 20231205
